FAERS Safety Report 12591544 (Version 1)
Quarter: 2016Q3

REPORT INFORMATION
  Report Type: Spontaneous
  Country: DK (occurrence: DK)
  Receive Date: 20160726
  Receipt Date: 20160726
  Transmission Date: 20161109
  Serious: Yes (Hospitalization)
  Sender: FDA-Public Use
  Company Number: DK-009507513-1408DNK012936

PATIENT
  Age: 89 Year
  Sex: Female

DRUGS (3)
  1. COZAAR COMP. [Suspect]
     Active Substance: HYDROCHLOROTHIAZIDE\LOSARTAN POTASSIUM
     Indication: HYPERTENSION
     Dosage: 2 TABLETS DAILY
     Route: 048
     Dates: end: 20140808
  2. AMLODIPINE [Concomitant]
     Active Substance: AMLODIPINE BESYLATE
     Indication: HYPERTENSION
     Dosage: 5 MG DAILY
     Dates: end: 20140808
  3. COZAAR COMP. [Suspect]
     Active Substance: HYDROCHLOROTHIAZIDE\LOSARTAN POTASSIUM
     Dosage: 1 TABLET TWICE DAILY
     Route: 048
     Dates: start: 20141021

REACTIONS (7)
  - Blood creatinine increased [None]
  - Dehydration [Recovered/Resolved]
  - Diarrhoea [Recovered/Resolved]
  - Nausea [Recovered/Resolved]
  - Dizziness [Recovered/Resolved]
  - Clostridium test positive [None]
  - Bacterial test positive [None]

NARRATIVE: CASE EVENT DATE: 201407
